FAERS Safety Report 4488975-6 (Version None)
Quarter: 2004Q4

REPORT INFORMATION
  Report Type: 
  Country: None (occurrence: None)
  Receive Date: 20041026
  Receipt Date: 20041018
  Transmission Date: 20050328
  Serious: Yes (Congenital Anomaly)
  Sender: FDA-Public Use
  Company Number: 2004SE05776

PATIENT
  Age: 40 Year
  Sex: Female

DRUGS (1)
  1. ZOLADEX [Suspect]
     Indication: UTERINE LEIOMYOMA
     Dosage: 3.6 MG Q4WK SQ
     Route: 058
     Dates: start: 20040608, end: 20040910

REACTIONS (2)
  - ABORTION INDUCED [None]
  - DRUG EXPOSURE DURING PREGNANCY [None]
